FAERS Safety Report 4670495-7 (Version None)
Quarter: 2005Q2

REPORT INFORMATION
  Report Type: 
  Country: None (occurrence: None)
  Receive Date: 20050523
  Receipt Date: 20050131
  Transmission Date: 20051028
  Serious: Yes (Death, Hospitalization, Other)
  Sender: FDA-Public Use
  Company Number: US-MERCK-0502USA00060

PATIENT
  Age: 73 Year
  Sex: Male
  Weight: 84 kg

DRUGS (20)
  1. VIOXX [Suspect]
     Indication: ARTHRALGIA
     Route: 048
     Dates: start: 19990801, end: 20020101
  2. VIOXX [Suspect]
     Indication: RHEUMATOID ARTHRITIS
     Route: 048
     Dates: start: 19990801, end: 20020101
  3. CELEBREX [Concomitant]
     Indication: ARTHRALGIA
     Route: 065
     Dates: start: 20000101, end: 20020101
  4. CELEBREX [Concomitant]
     Indication: PAIN
     Route: 065
     Dates: start: 20000101, end: 20020101
  5. ASPIRIN [Concomitant]
     Indication: PROPHYLAXIS
     Route: 065
     Dates: start: 19940101, end: 20020101
  6. ASPIRIN [Concomitant]
     Indication: CARDIAC DISORDER
     Route: 065
     Dates: start: 19940101, end: 20020101
  7. IMDUR [Concomitant]
     Indication: CARDIAC DISORDER
     Route: 065
     Dates: start: 19990801, end: 20020101
  8. IMDUR [Concomitant]
     Indication: HEART RATE IRREGULAR
     Route: 065
     Dates: start: 19990801, end: 20020101
  9. GLUCOPHAGE [Concomitant]
     Indication: DIABETES MELLITUS
     Route: 065
  10. DIABINESE [Concomitant]
     Indication: DIABETES MELLITUS
     Route: 065
  11. COZAAR [Concomitant]
     Route: 065
     Dates: start: 19990101, end: 20020117
  12. PLENDIL [Concomitant]
     Route: 065
     Dates: start: 19990801, end: 20020117
  13. DIOVAN [Concomitant]
     Route: 065
     Dates: start: 19990101, end: 20020117
  14. LOPRESSOR [Concomitant]
     Route: 065
     Dates: start: 19970101, end: 20020117
  15. TOPROL-XL [Concomitant]
     Route: 065
     Dates: start: 19990801, end: 20020117
  16. NORVASC [Concomitant]
     Route: 065
     Dates: start: 19940101, end: 20020117
  17. LANOXIN [Concomitant]
     Route: 065
     Dates: start: 20010101, end: 20020117
  18. HEPARIN [Concomitant]
     Route: 065
     Dates: start: 20011001, end: 20020117
  19. PLAVIX [Concomitant]
     Route: 065
     Dates: start: 20010101, end: 20020117
  20. ZOCOR [Concomitant]
     Route: 065
     Dates: start: 20010101, end: 20020117

REACTIONS (26)
  - ABDOMINAL PAIN UPPER [None]
  - ACUTE MYOCARDIAL INFARCTION [None]
  - ANAEMIA [None]
  - ANGINA UNSTABLE [None]
  - ANGIODYSPLASIA [None]
  - BLOOD DISORDER [None]
  - CHEST PAIN [None]
  - CONGESTIVE CARDIOMYOPATHY [None]
  - DYSPNOEA [None]
  - GASTRIC HAEMORRHAGE [None]
  - GASTRITIS [None]
  - GASTROINTESTINAL HAEMORRHAGE [None]
  - HAEMATOCHEZIA [None]
  - HYPOCHROMIC ANAEMIA [None]
  - HYPOMAGNESAEMIA [None]
  - ISCHAEMIC CARDIOMYOPATHY [None]
  - MYOCARDIAL INFARCTION [None]
  - PALPITATIONS [None]
  - PANIC DISORDER [None]
  - PEPTIC ULCER [None]
  - RESPIRATORY TRACT INFECTION [None]
  - SHOULDER PAIN [None]
  - SINUS BRADYCARDIA [None]
  - STAPHYLOCOCCAL BACTERAEMIA [None]
  - UROSEPSIS [None]
  - VENTRICULAR DYSFUNCTION [None]
